FAERS Safety Report 8486163-X (Version None)
Quarter: 2012Q3

REPORT INFORMATION
  Report Type: 
  Country: None (occurrence: None)
  Receive Date: 20120703
  Receipt Date: 20120629
  Transmission Date: 20120928
  Serious: Yes (Other)
  Sender: FDA-Public Use
  Company Number: US-PFIZER INC-2012157040

PATIENT
  Sex: Female
  Weight: 48.526 kg

DRUGS (4)
  1. MEDROL [Suspect]
     Indication: PHARYNGEAL OEDEMA
     Dosage: UNK
     Dates: start: 20120401, end: 20120401
  2. MEDROL [Suspect]
     Indication: SINUSITIS
  3. SYNTHROID [Concomitant]
     Indication: THYROID DISORDER
     Dosage: 0.15 MG, DAILY
  4. MEDROL [Suspect]
     Indication: LARYNGEAL INFLAMMATION

REACTIONS (10)
  - VOMITING [None]
  - LIPOATROPHY [None]
  - DIZZINESS [None]
  - MALAISE [None]
  - PALLOR [None]
  - DECREASED APPETITE [None]
  - EYE DISORDER [None]
  - EYE INFLAMMATION [None]
  - INCORRECT DOSE ADMINISTERED [None]
  - WEIGHT DECREASED [None]
